FAERS Safety Report 21181461 (Version 1)
Quarter: 2022Q3

REPORT INFORMATION
  Report Type: Spontaneous
  Country: US (occurrence: US)
  Receive Date: 20220806
  Receipt Date: 20220806
  Transmission Date: 20221027
  Serious: No
  Sender: FDA-Public Use
  Company Number: US-SA-SAC20220801001797

PATIENT
  Sex: Male
  Weight: 113 kg

DRUGS (7)
  1. DUPIXENT [Suspect]
     Active Substance: DUPILUMAB
     Indication: Dermatitis atopic
     Dosage: 300 MG, QOW
     Route: 058
  2. DUPIXENT [Suspect]
     Active Substance: DUPILUMAB
     Indication: Nasal polyps
  3. FLOMAX [Suspect]
     Active Substance: TAMSULOSIN HYDROCHLORIDE
  4. TRINTELLIX [Suspect]
     Active Substance: VORTIOXETINE HYDROBROMIDE
  5. FINASTERIDE [Concomitant]
     Active Substance: FINASTERIDE
  6. FISH OIL [Concomitant]
     Active Substance: FISH OIL
  7. CIALIS [Concomitant]
     Active Substance: TADALAFIL

REACTIONS (2)
  - Headache [Unknown]
  - Product use in unapproved indication [Unknown]
